FAERS Safety Report 20330346 (Version 2)
Quarter: 2022Q1

REPORT INFORMATION
  Report Type: Spontaneous
  Country: US (occurrence: US)
  Receive Date: 20220113
  Receipt Date: 20220216
  Transmission Date: 20220423
  Serious: Yes (Other)
  Sender: FDA-Public Use
  Company Number: US-CELLTRION INC.-2022US000096

PATIENT

DRUGS (2)
  1. TRUXIMA [Suspect]
     Active Substance: RITUXIMAB-ABBS
     Indication: Nephritic syndrome
     Dosage: 1000 MG DAY 1 AND DAY 15 THEN Q6MONTHS
     Dates: start: 20210702
  2. TRUXIMA [Suspect]
     Active Substance: RITUXIMAB-ABBS
     Dosage: 1000 MG DAY 1 AND DAY 15 THEN Q6MONTHS
     Dates: start: 20210719

REACTIONS (2)
  - Nephritic syndrome [Unknown]
  - Off label use [Unknown]
